FAERS Safety Report 5815093-4 (Version None)
Quarter: 2008Q3

REPORT INFORMATION
  Report Type: 
  Country: None (occurrence: None)
  Receive Date: 20080718
  Receipt Date: 20080711
  Transmission Date: 20090109
  Serious: Yes (Congenital Anomaly)
  Sender: FDA-Public Use
  Company Number: US-MERCK-0604USA02410B1

PATIENT

DRUGS (5)
  1. SINGULAIR [Suspect]
     Indication: ASTHMA
     Route: 064
  2. SINGULAIR [Suspect]
     Indication: BRONCHIAL HYPERREACTIVITY
     Route: 064
  3. ZYRTEC [Concomitant]
     Indication: ASTHMA
     Route: 064
  4. ZYRTEC [Concomitant]
     Indication: BRONCHIAL HYPERREACTIVITY
     Route: 064
  5. VITAMINS (UNSPECIFIED) [Concomitant]
     Route: 064

REACTIONS (1)
  - CLEFT LIP AND PALATE [None]
